FAERS Safety Report 7915894-2 (Version None)
Quarter: 2011Q4

REPORT INFORMATION
  Report Type: 
  Country: None (occurrence: None)
  Receive Date: 20111115
  Receipt Date: 20111108
  Transmission Date: 20120403
  Serious: Yes (Hospitalization)
  Sender: FDA-Public Use
  Company Number: NO-B.I. PHARMACEUTICALS,INC./RIDGEFIELD-2011-SW-00461NO

PATIENT
  Sex: Female

DRUGS (2)
  1. PERSANTIN [Suspect]
     Dosage: 400 MG
     Route: 048
  2. ASPIRIN [Suspect]
     Dosage: 75 MG
     Route: 048

REACTIONS (1)
  - CEREBELLAR HAEMORRHAGE [None]
